FAERS Safety Report 6743346-4 (Version None)
Quarter: 2010Q2

REPORT INFORMATION
  Report Type: 
  Country: None (occurrence: None)
  Receive Date: 20100527
  Receipt Date: 20100512
  Transmission Date: 20101027
  Serious: Yes (Hospitalization, Other)
  Sender: FDA-Public Use
  Company Number: US-ELI_LILLY_AND_COMPANY-US201005005910

PATIENT
  Age: 68 Year
  Sex: Female

DRUGS (7)
  1. FORTEO [Suspect]
     Indication: OSTEOPOROSIS
     Dosage: 20 UG, DAILY (1/D)
     Dates: start: 20100120
  2. ZOCOR [Concomitant]
     Indication: BLOOD CHOLESTEROL
     Dosage: 40 MG, DAILY (1/D)
  3. ASPIRIN [Concomitant]
     Indication: CARDIAC DISORDER
     Dosage: 81 MG, DAILY (1/D)
  4. FEXOFENADINE [Concomitant]
     Dosage: 180 MG, DAILY (1/D)
  5. MULTIVITAMIN /01229101/ [Concomitant]
  6. VITAMIN D [Concomitant]
     Dosage: 50000 U, WEEKLY (1/W)
  7. SYNTHROID [Concomitant]
     Dosage: 0.5 UG, EACH MORNING

REACTIONS (5)
  - CARDIAC DISORDER [None]
  - CHEST PAIN [None]
  - CORONARY ARTERY OCCLUSION [None]
  - COUGH [None]
  - DYSPNOEA [None]
